FAERS Safety Report 24417291 (Version 1)
Quarter: 2024Q4

REPORT INFORMATION
  Report Type: Spontaneous
  Country: ES (occurrence: ES)
  Receive Date: 20241009
  Receipt Date: 20241009
  Transmission Date: 20250115
  Serious: Yes (Hospitalization, Other)
  Sender: GLAND PHARMA
  Company Number: ES-GLANDPHARMA-ES-2024GLNLIT00815

PATIENT
  Age: 24 Year
  Sex: Male

DRUGS (11)
  1. CASPOFUNGIN ACETATE [Suspect]
     Active Substance: CASPOFUNGIN ACETATE
     Indication: Candida endophthalmitis
     Dosage: 100 MICROGRAM/0.1 ML, RIGHT EYES
     Route: 035
  2. CASPOFUNGIN ACETATE [Suspect]
     Active Substance: CASPOFUNGIN ACETATE
     Dosage: 100 MICROGRAM/0.1 ML, BOTH EYES
     Route: 035
  3. CASPOFUNGIN ACETATE [Suspect]
     Active Substance: CASPOFUNGIN ACETATE
     Dosage: 100 MICROGRAM/0.1 ML, IN EACH EYES 1 WEEK AND 3 WEEKS LATER
     Route: 035
  4. CASPOFUNGIN ACETATE [Suspect]
     Active Substance: CASPOFUNGIN ACETATE
     Dosage: 100 MICROGRAM/0.1 ML, IN THE RIGHT EYE
     Route: 035
     Dates: start: 20211223
  5. ANIDULAFUNGIN [Concomitant]
     Active Substance: ANIDULAFUNGIN
     Indication: Candida endophthalmitis
     Route: 042
     Dates: start: 20211119, end: 20220520
  6. ANIDULAFUNGIN [Concomitant]
     Active Substance: ANIDULAFUNGIN
     Route: 042
  7. FLUCONAZOLE [Concomitant]
     Active Substance: FLUCONAZOLE
     Indication: Candida endophthalmitis
     Route: 065
  8. AMPHOTERICIN B [Concomitant]
     Active Substance: AMPHOTERICIN B
     Indication: Candida endophthalmitis
     Route: 065
  9. ITRACONAZOLE [Concomitant]
     Active Substance: ITRACONAZOLE
     Indication: Candida endophthalmitis
     Route: 065
  10. VORICONAZOLE [Concomitant]
     Active Substance: VORICONAZOLE
     Indication: Candida endophthalmitis
     Route: 065
  11. ISAVUCONAZOLE [Concomitant]
     Active Substance: ISAVUCONAZOLE
     Indication: Candida endophthalmitis
     Route: 065
     Dates: start: 20211119, end: 20220520

REACTIONS (2)
  - Cataract [Not Recovered/Not Resolved]
  - Drug ineffective [Unknown]
